FAERS Safety Report 5015542-8 (Version None)
Quarter: 2006Q2

REPORT INFORMATION
  Report Type: 
  Country: None (occurrence: None)
  Receive Date: 20060601
  Receipt Date: 20060124
  Transmission Date: 20061013
  Serious: Yes (Hospitalization)
  Sender: FDA-Public Use
  Company Number: FI-AMGEN-UK166272

PATIENT
  Age: 67 Year
  Sex: Male

DRUGS (4)
  1. NEULASTA [Suspect]
     Indication: CHEMOTHERAPY
     Route: 058
     Dates: start: 20060119
  2. NEUPOGEN [Suspect]
     Route: 058
     Dates: start: 20060122
  3. XELODA [Concomitant]
  4. IRINOTECAN [Concomitant]

REACTIONS (5)
  - ERYTHEMA [None]
  - FEBRILE NEUTROPENIA [None]
  - NEUTROPENIC INFECTION [None]
  - PROSTRATION [None]
  - STREPTOCOCCAL INFECTION [None]
